FAERS Safety Report 12104517 (Version 2)
Quarter: 2017Q3

REPORT INFORMATION
  Report Type: Spontaneous
  Country: ZA (occurrence: ZA)
  Receive Date: 20160223
  Receipt Date: 20170906
  Transmission Date: 20171127
  Serious: Yes (Hospitalization)
  Sender: FDA-Public Use
  Company Number: ZA-SA-2016SA032641

PATIENT
  Age: 4 Year
  Sex: Female

DRUGS (26)
  1. ETHAMBUTOL [Suspect]
     Active Substance: ETHAMBUTOL HYDROCHLORIDE
     Indication: MENINGITIS TUBERCULOUS
     Route: 065
     Dates: start: 201208, end: 201211
  2. ETHIONAMIDE [Suspect]
     Active Substance: ETHIONAMIDE
     Indication: MENINGITIS TUBERCULOUS
     Route: 065
     Dates: start: 201111, end: 201112
  3. RIFAMPICIN [Suspect]
     Active Substance: RIFAMPIN
     Indication: MENINGITIS TUBERCULOUS
     Route: 065
     Dates: start: 201202, end: 201206
  4. CAPREOMYCIN [Suspect]
     Active Substance: CAPREOMYCIN
     Indication: MENINGITIS TUBERCULOUS
     Route: 065
     Dates: start: 201210, end: 201306
  5. AMIKACIN [Suspect]
     Active Substance: AMIKACIN
     Indication: MENINGITIS TUBERCULOUS
     Route: 065
     Dates: start: 201208, end: 201209
  6. OFLOXACIN. [Suspect]
     Active Substance: OFLOXACIN
     Indication: MENINGITIS TUBERCULOUS
     Route: 065
     Dates: start: 201208, end: 201210
  7. CLARITHROMYCIN. [Suspect]
     Active Substance: CLARITHROMYCIN
     Indication: MENINGITIS TUBERCULOUS
     Dosage: 15 MG/KG IN 2 DOSES
     Route: 065
  8. PARA-AMINOSALICYLIC ACID [Suspect]
     Active Substance: AMINOSALICYLIC ACID
     Indication: MENINGITIS TUBERCULOUS
     Route: 065
     Dates: start: 201209, end: 201211
  9. TERIZIDONE [Suspect]
     Active Substance: TERIZIDONE
     Indication: MENINGITIS TUBERCULOUS
     Route: 065
     Dates: start: 201201, end: 201403
  10. PYRAZINAMIDE. [Suspect]
     Active Substance: PYRAZINAMIDE
     Indication: MENINGITIS TUBERCULOUS
     Route: 065
     Dates: start: 201208, end: 201211
  11. LEVOFLOXACIN. [Suspect]
     Active Substance: LEVOFLOXACIN
     Indication: MENINGITIS TUBERCULOUS
     Route: 065
     Dates: start: 201211, end: 201403
  12. PREDNISOLONE. [Concomitant]
     Active Substance: PREDNISOLONE
  13. ETHIONAMIDE [Suspect]
     Active Substance: ETHIONAMIDE
     Indication: MENINGITIS TUBERCULOUS
     Route: 065
     Dates: start: 201202, end: 201206
  14. ISONIAZID. [Suspect]
     Active Substance: ISONIAZID
     Indication: MENINGITIS TUBERCULOUS
     Route: 065
     Dates: start: 201202, end: 201206
  15. PARA-AMINOSALICYLIC ACID [Suspect]
     Active Substance: AMINOSALICYLIC ACID
     Indication: MENINGITIS TUBERCULOUS
     Route: 065
     Dates: start: 201301, end: 201403
  16. ISONIAZID. [Suspect]
     Active Substance: ISONIAZID
     Indication: MENINGITIS TUBERCULOUS
     Route: 065
     Dates: start: 201111, end: 201112
  17. LINEZOLID. [Suspect]
     Active Substance: LINEZOLID
     Indication: MENINGITIS TUBERCULOUS
     Route: 065
     Dates: start: 201210, end: 201403
  18. PREDNISOLONE. [Concomitant]
     Active Substance: PREDNISOLONE
     Dosage: TAPERED
  19. RIFAMPICIN [Suspect]
     Active Substance: RIFAMPIN
     Indication: MENINGITIS TUBERCULOUS
     Route: 065
     Dates: start: 201111, end: 201112
  20. OFLOXACIN. [Suspect]
     Active Substance: OFLOXACIN
     Indication: MENINGITIS TUBERCULOUS
     Route: 065
     Dates: start: 201201, end: 201201
  21. CLOFAZIMINE [Suspect]
     Active Substance: CLOFAZIMINE
     Indication: MENINGITIS TUBERCULOUS
     Route: 065
     Dates: start: 201210, end: 201403
  22. ETHAMBUTOL [Suspect]
     Active Substance: ETHAMBUTOL HYDROCHLORIDE
     Indication: MENINGITIS TUBERCULOUS
     Route: 065
     Dates: start: 201201, end: 201201
  23. ETHIONAMIDE [Suspect]
     Active Substance: ETHIONAMIDE
     Indication: MENINGITIS TUBERCULOUS
     Route: 065
     Dates: start: 201208, end: 201211
  24. ETHIONAMIDE [Suspect]
     Active Substance: ETHIONAMIDE
     Indication: MENINGITIS TUBERCULOUS
     Route: 065
     Dates: start: 201301, end: 201403
  25. PYRAZINAMIDE. [Suspect]
     Active Substance: PYRAZINAMIDE
     Indication: MENINGITIS TUBERCULOUS
     Route: 065
     Dates: start: 201111, end: 201112
  26. AMIKACIN [Suspect]
     Active Substance: AMIKACIN
     Indication: MENINGITIS TUBERCULOUS
     Route: 065
     Dates: start: 201201, end: 201201

REACTIONS (10)
  - Ataxia [Recovered/Resolved]
  - Hypothyroidism [Recovered/Resolved]
  - Gastrointestinal disorder [Recovered/Resolved]
  - Alanine aminotransferase increased [Recovered/Resolved]
  - Vomiting [Recovered/Resolved]
  - Pallor [Recovering/Resolving]
  - Hepatosplenomegaly [Recovering/Resolving]
  - Abdominal distension [Recovering/Resolving]
  - Drug-induced liver injury [Recovering/Resolving]
  - Anaemia [Recovered/Resolved]
